FAERS Safety Report 25150423 (Version 1)
Quarter: 2025Q2

REPORT INFORMATION
  Report Type: Spontaneous
  Country: CN (occurrence: CN)
  Receive Date: 20250402
  Receipt Date: 20250402
  Transmission Date: 20250717
  Serious: No
  Sender: ALEXION PHARMACEUTICALS
  Company Number: CN-AstraZeneca-CH-00836769A

PATIENT
  Age: 72 Year

DRUGS (1)
  1. BUDESONIDE\FORMOTEROL\GLYCOPYRRONIUM [Suspect]
     Active Substance: BUDESONIDE\FORMOTEROL\GLYCOPYRRONIUM
     Route: 065

REACTIONS (1)
  - Wrong technique in device usage process [Unknown]
